FAERS Safety Report 4585299-3 (Version None)
Quarter: 2005Q1

REPORT INFORMATION
  Report Type: 
  Country: None (occurrence: None)
  Receive Date: 20050214
  Receipt Date: 20050201
  Transmission Date: 20050727
  Serious: Yes (Hospitalization, Other)
  Sender: FDA-Public Use
  Company Number: 2004092924

PATIENT
  Age: 86 Year
  Sex: Female
  Weight: 77.1115 kg

DRUGS (2)
  1. ZOLOFT [Suspect]
     Indication: DEPRESSION
     Dosage: 50 MG (25 MG, 1 IN 1 D), ORAL
     Route: 048
     Dates: start: 20041012, end: 20041026
  2. LOTREL [Concomitant]

REACTIONS (8)
  - ABDOMINAL PAIN [None]
  - ASTHENIA [None]
  - DEHYDRATION [None]
  - DIARRHOEA [None]
  - FEELING ABNORMAL [None]
  - HEARING IMPAIRED [None]
  - HYPONATRAEMIA [None]
  - MENTAL DISORDER [None]
